FAERS Safety Report 5153159-5 (Version None)
Quarter: 2006Q4

REPORT INFORMATION
  Report Type: 
  Country: None (occurrence: None)
  Receive Date: 20061117
  Receipt Date: 20061003
  Transmission Date: 20070319
  Serious: Yes (Hospitalization)
  Sender: FDA-Public Use
  Company Number: 2006CG01626

PATIENT
  Age: 18302 Day
  Sex: Female
  Weight: 64 kg

DRUGS (2)
  1. ZOMIG [Suspect]
     Indication: MIGRAINE
     Route: 048
     Dates: end: 20060913
  2. HARMONET [Suspect]
     Indication: ORAL CONTRACEPTION

REACTIONS (11)
  - ALEXIA [None]
  - CAROTID ARTERY DISSECTION [None]
  - CEREBRAL HAEMATOMA [None]
  - CEREBROVASCULAR DISORDER [None]
  - DYSGEUSIA [None]
  - HEADACHE [None]
  - ISCHAEMIC STROKE [None]
  - NECK PAIN [None]
  - READING DISORDER [None]
  - SPEECH DISORDER [None]
  - TORTICOLLIS [None]
